FAERS Safety Report 7493434-2 (Version None)
Quarter: 2011Q2

REPORT INFORMATION
  Report Type: 
  Country: None (occurrence: None)
  Receive Date: 20110520
  Receipt Date: 20110429
  Transmission Date: 20111010
  Serious: Yes (Hospitalization, Other)
  Sender: FDA-Public Use
  Company Number: US-BAYER-2011-016141

PATIENT
  Age: 33 Year
  Sex: Female
  Weight: 77.098 kg

DRUGS (9)
  1. YAZ [Suspect]
     Indication: ACNE
     Dosage: UNK
     Dates: start: 20080101, end: 20090101
  2. DROSPIRENONE AND ETHINYL ESTRADIOL [Suspect]
  3. YAZ [Suspect]
  4. YASMIN [Suspect]
     Indication: ACNE
     Dosage: UNK
     Dates: start: 20080101, end: 20090101
  5. DROSPIRENONE AND ETHINYL ESTRADIOL [Suspect]
     Indication: ACNE
     Dosage: UNK
     Dates: start: 20080101, end: 20090101
  6. YASMIN [Suspect]
     Indication: PREMENSTRUAL SYNDROME
  7. DROSPIRENONE AND ETHINYL ESTRADIOL [Suspect]
     Indication: PREMENSTRUAL SYNDROME
  8. YAZ [Suspect]
     Indication: PREMENSTRUAL SYNDROME
  9. YASMIN [Suspect]

REACTIONS (6)
  - CHEST PAIN [None]
  - PULMONARY EMBOLISM [None]
  - INJURY [None]
  - PAIN [None]
  - ANXIETY [None]
  - STRESS [None]
